APPROVED DRUG PRODUCT: MINOCYCLINE HYDROCHLORIDE
Active Ingredient: MINOCYCLINE HYDROCHLORIDE
Strength: EQ 100MG BASE
Dosage Form/Route: TABLET;ORAL
Application: A213662 | Product #003 | TE Code: AB
Applicant: AUROBINDO PHARMA LTD
Approved: May 1, 2020 | RLD: No | RS: No | Type: RX